FAERS Safety Report 8077888-9 (Version None)
Quarter: 2012Q1

REPORT INFORMATION
  Report Type: 
  Country: None (occurrence: None)
  Receive Date: 20120127
  Receipt Date: 20120124
  Transmission Date: 20120608
  Serious: Yes (Life-Threatening, Other)
  Sender: FDA-Public Use
  Company Number: US-MERCK-1201USA03270

PATIENT
  Age: 56 Year
  Sex: Male

DRUGS (2)
  1. ZOCOR [Suspect]
     Indication: BLOOD CHOLESTEROL ABNORMAL
     Dosage: 20MG TABLET
     Route: 048
     Dates: end: 20120102
  2. ASPIRIN [Concomitant]
     Route: 065

REACTIONS (3)
  - THROAT TIGHTNESS [None]
  - ANGIOEDEMA [None]
  - DRUG ADMINISTRATION ERROR [None]
